FAERS Safety Report 24820887 (Version 1)
Quarter: 2025Q1

REPORT INFORMATION
  Report Type: Spontaneous
  Country: US (occurrence: US)
  Receive Date: 20250108
  Receipt Date: 20250108
  Transmission Date: 20250409
  Serious: No
  Sender: SANOFI AVENTIS
  Company Number: US-SA-2025SA003850

PATIENT
  Sex: Female
  Weight: 63.5 kg

DRUGS (15)
  1. DUPIXENT [Suspect]
     Active Substance: DUPILUMAB
     Indication: Eosinophilic oesophagitis
     Dosage: 300 MG, QW
     Route: 058
  2. Comirnaty [Concomitant]
  3. FLUARIX NOS [Concomitant]
     Active Substance: INFLUENZA VIRUS VACCINE
     Indication: Immunisation
  4. LILETTA [Concomitant]
     Active Substance: LEVONORGESTREL
  5. TRIAMCINOLONE ACETONIDE [Concomitant]
     Active Substance: TRIAMCINOLONE ACETONIDE
  6. IMIQUIMOD [Concomitant]
     Active Substance: IMIQUIMOD
  7. AZELASTINE HYDROCHLORIDE [Concomitant]
     Active Substance: AZELASTINE HYDROCHLORIDE
  8. SUMATRIPTAN SUCCINATE [Concomitant]
     Active Substance: SUMATRIPTAN SUCCINATE
  9. AMITRIPTYLINE HYDROCHLORIDE [Concomitant]
     Active Substance: AMITRIPTYLINE HYDROCHLORIDE
  10. GABAPENTIN [Concomitant]
     Active Substance: GABAPENTIN
  11. B12 [Concomitant]
  12. TRULANCE [Concomitant]
     Active Substance: PLECANATIDE
  13. LORATADINE [Concomitant]
     Active Substance: LORATADINE
  14. HYDROXYCHLOROQUINE SULFATE [Concomitant]
     Active Substance: HYDROXYCHLOROQUINE SULFATE
  15. VITAMIN D3 [Concomitant]
     Active Substance: CHOLECALCIFEROL

REACTIONS (1)
  - Hand dermatitis [Not Recovered/Not Resolved]
